FAERS Safety Report 25440082 (Version 1)
Quarter: 2025Q2

REPORT INFORMATION
  Report Type: Spontaneous
  Country: US (occurrence: None)
  Receive Date: 20250614
  Receipt Date: 20250614
  Transmission Date: 20250717
  Serious: Yes (Hospitalization)
  Sender: FDA-CTU
  Company Number: None

PATIENT
  Age: 79 Year
  Sex: Female
  Weight: 74.39 kg

DRUGS (35)
  1. SCEMBLIX [Suspect]
     Active Substance: ASCIMINIB HYDROCHLORIDE
     Dosage: FREQUENCY : DAILY;?
     Route: 048
     Dates: start: 20241107
  2. ADDERALL [Concomitant]
     Active Substance: AMPHETAMINE ASPARTATE\AMPHETAMINE SULFATE\DEXTROAMPHETAMINE SACCHARATE\DEXTROAMPHETAMINE SULFATE
  3. ALBUTEROL SULFATE [Concomitant]
     Active Substance: ALBUTEROL SULFATE
  4. AMITRIPTYLINE [Concomitant]
     Active Substance: AMITRIPTYLINE
  5. AMLODIPINE BESYLATE [Concomitant]
     Active Substance: AMLODIPINE BESYLATE
  6. BENZONATATE [Concomitant]
     Active Substance: BENZONATATE
  7. CHOLESTYRAMINE [Concomitant]
     Active Substance: CHOLESTYRAMINE
  8. COLLAGEN ULTRA [Concomitant]
  9. COMBIVENT [Concomitant]
     Active Substance: ALBUTEROL SULFATE\IPRATROPIUM BROMIDE
  10. FAMOTIDINE [Concomitant]
     Active Substance: FAMOTIDINE
  11. FERROUS SULFATE [Concomitant]
     Active Substance: FERROUS SULFATE
  12. FOLIC ACID [Concomitant]
     Active Substance: FOLIC ACID
  13. GLUCOSAMINE-CHONDROLTIN [Concomitant]
  14. IVERMECTIN [Concomitant]
     Active Substance: IVERMECTIN
  15. LEVOTHRYROXINE SODIUM [Concomitant]
  16. MACRODANTIN [Concomitant]
     Active Substance: NITROFURANTOIN
  17. MELOXICAM [Concomitant]
     Active Substance: MELOXICAM
  18. METHOTREXATE SODIUM [Concomitant]
     Active Substance: METHOTREXATE SODIUM
  19. MORPHINE SULFATE [Concomitant]
     Active Substance: MORPHINE SULFATE
  20. ONDANSETRON [Concomitant]
     Active Substance: ONDANSETRON
  21. PANTOPRAZOLE SODIUM [Concomitant]
     Active Substance: PANTOPRAZOLE SODIUM
  22. PREGABALIN [Concomitant]
     Active Substance: PREGABALIN
  23. Turmeric Complex [Concomitant]
  24. CALCIUM [Concomitant]
     Active Substance: CALCIUM
  25. SERTRALINE [Concomitant]
     Active Substance: SERTRALINE HYDROCHLORIDE
  26. super vitamin complex [Concomitant]
  27. BIOTIN [Concomitant]
     Active Substance: BIOTIN
  28. VITAMIN C [Concomitant]
     Active Substance: ASCORBIC ACID
  29. VITAMIN D3 [Concomitant]
     Active Substance: CHOLECALCIFEROL
  30. SUCRALFATE [Concomitant]
     Active Substance: SUCRALFATE
  31. super biotin [Concomitant]
  32. TRAZODONE [Concomitant]
     Active Substance: TRAZODONE HYDROCHLORIDE
  33. TYLENOL [Concomitant]
     Active Substance: ACETAMINOPHEN
  34. PROBIOTICS NOS [Concomitant]
     Active Substance: PROBIOTICS NOS
  35. VITAMIN K [Concomitant]
     Active Substance: PHYTONADIONE

REACTIONS (3)
  - Small intestinal obstruction [None]
  - Scar [None]
  - Appendix disorder [None]
